FAERS Safety Report 8816402 (Version 1)
Quarter: 2012Q4

REPORT INFORMATION
  Report Type: Spontaneous
  Country: US (occurrence: None)
  Receive Date: 20120928
  Receipt Date: 20120928
  Transmission Date: 20130627
  Serious: Yes (Hospitalization)
  Sender: FDA-Public Use
  Company Number: None

PATIENT
  Age: 72 Year
  Sex: Female
  Weight: 54.2 kg

DRUGS (15)
  1. TIKOSYN [Suspect]
     Indication: AFIB
     Dosage: recent
     Route: 048
  2. TRIAMCINOLONE CREAM [Concomitant]
  3. HYDROCORTISONE CREAM [Concomitant]
  4. XARELTO [Concomitant]
  5. FISH OIL [Concomitant]
  6. METFORMIN [Concomitant]
  7. CHONDROITIN [Concomitant]
  8. GLIMEPIRIDE [Concomitant]
  9. LASIX [Concomitant]
  10. CARVEDILOL [Concomitant]
  11. MVI [Concomitant]
  12. KCL [Concomitant]
  13. FLUTICASON [Concomitant]
  14. ATORVASTATIN [Concomitant]
  15. ASA [Concomitant]

REACTIONS (3)
  - Sinus bradycardia [None]
  - Torsade de pointes [None]
  - Cardiac arrest [None]
